FAERS Safety Report 4301079-8 (Version None)
Quarter: 2004Q1

REPORT INFORMATION
  Report Type: 
  Country: None (occurrence: None)
  Receive Date: 20040218
  Receipt Date: 20040129
  Transmission Date: 20041129
  Serious: Yes (Hospitalization, Other)
  Sender: FDA-Public Use
  Company Number: USA040157959

PATIENT
  Age: 31 Year
  Sex: Male
  Weight: 93 kg

DRUGS (4)
  1. HUMULIN R [Suspect]
     Indication: DIABETES MELLITUS
  2. HUMULIN U [Suspect]
     Indication: DIABETES MELLITUS
  3. HUMULIN N [Suspect]
     Indication: DIABETES MELLITUS
     Dosage: 64 U/DAY
     Dates: start: 19940101
  4. HUMALOG [Suspect]
     Indication: DIABETES MELLITUS
     Dates: start: 20010101

REACTIONS (6)
  - DIABETES MELLITUS INADEQUATE CONTROL [None]
  - DIABETIC COMA [None]
  - ECONOMIC PROBLEM [None]
  - NEUROPATHY [None]
  - VISUAL DISTURBANCE [None]
  - WEIGHT DECREASED [None]
